FAERS Safety Report 23904977 (Version 1)
Quarter: 2024Q2

REPORT INFORMATION
  Report Type: Spontaneous
  Country: US (occurrence: US)
  Receive Date: 20240527
  Receipt Date: 20240527
  Transmission Date: 20240716
  Serious: Yes (Other)
  Sender: FDA-Public Use
  Company Number: US-ALEMBIC PHARMACUETICALS LIMITED-2024SCAL000646

PATIENT

DRUGS (3)
  1. AMANTADINE HYDROCHLORIDE [Suspect]
     Active Substance: AMANTADINE HYDROCHLORIDE
     Indication: Parkinson^s disease
     Dosage: UNK
     Route: 065
  2. CARBIDOPA AND LEVODOPA [Suspect]
     Active Substance: CARBIDOPA\LEVODOPA
     Indication: Parkinson^s disease
     Dosage: UNK
     Route: 065
  3. SELEGILINE [Suspect]
     Active Substance: SELEGILINE
     Indication: Parkinson^s disease
     Dosage: UNK
     Route: 065

REACTIONS (16)
  - Dyskinesia hyperpyrexia syndrome [Unknown]
  - Acute kidney injury [Unknown]
  - Hyperkalaemia [Unknown]
  - Hallucination [Unknown]
  - Renal failure [Unknown]
  - Hyperthermia [Recovering/Resolving]
  - Dyskinesia [Recovering/Resolving]
  - Pyrexia [Unknown]
  - Hypocalcaemia [Unknown]
  - Agitation [Unknown]
  - Tachycardia [Unknown]
  - Acidosis [Unknown]
  - Blood creatine phosphokinase increased [Unknown]
  - Tremor [Unknown]
  - Mental status changes [Recovering/Resolving]
  - Multiple organ dysfunction syndrome [Unknown]
